FAERS Safety Report 12075968 (Version 1)
Quarter: 2016Q1

REPORT INFORMATION
  Report Type: Spontaneous
  Country: US (occurrence: US)
  Receive Date: 20160215
  Receipt Date: 20160215
  Transmission Date: 20160526
  Serious: Yes (Other)
  Sender: FDA-Public Use
  Company Number: US-HOSPIRA-3164240

PATIENT
  Sex: Female

DRUGS (4)
  1. DILTIAZEM HYDROCHLORIDE. [Suspect]
     Active Substance: DILTIAZEM HYDROCHLORIDE
     Indication: ATRIAL FIBRILLATION
     Route: 041
     Dates: start: 20160130, end: 20160130
  2. DILTIAZEM HYDROCHLORIDE. [Suspect]
     Active Substance: DILTIAZEM HYDROCHLORIDE
     Indication: ATRIAL FIBRILLATION
     Route: 040
     Dates: start: 20160130, end: 20160130
  3. DEXTROSE. [Suspect]
     Active Substance: DEXTROSE
     Indication: ATRIAL FIBRILLATION
     Route: 040
     Dates: start: 20160130, end: 20160130
  4. DEXTROSE. [Suspect]
     Active Substance: DEXTROSE
     Indication: ATRIAL FIBRILLATION
     Route: 041
     Dates: start: 20160130, end: 20160130

REACTIONS (3)
  - Drug dose omission [Recovered/Resolved]
  - Product use issue [Recovered/Resolved]
  - Drug effect delayed [Recovered/Resolved]

NARRATIVE: CASE EVENT DATE: 20160130
